FAERS Safety Report 9068528 (Version 2)
Quarter: 2013Q3

REPORT INFORMATION
  Report Type: Report from Study
  Country: NL (occurrence: NL)
  Receive Date: 20130206
  Receipt Date: 20130708
  Transmission Date: 20140515
  Serious: Yes (Hospitalization)
  Sender: FDA-Public Use
  Company Number: PHHO2010NL19498

PATIENT
  Age: 72 Year
  Sex: 0

DRUGS (6)
  1. AFINITOR [Suspect]
     Indication: THYROID CANCER
     Dosage: UNK
     Dates: start: 20100623, end: 20101205
  2. AFINITOR [Suspect]
     Dosage: NO TREATMENT
     Dates: start: 20101206, end: 20101221
  3. AFINITOR [Suspect]
     Dates: start: 20101222
  4. HYDROCHLOROTHIAZIDE SANDOZ [Suspect]
  5. DIOVAN [Concomitant]
  6. THYRAX [Concomitant]

REACTIONS (3)
  - Infection [Recovered/Resolved]
  - Dehydration [Recovered/Resolved]
  - Diarrhoea [Recovered/Resolved]
